FAERS Safety Report 19841971 (Version 1)
Quarter: 2021Q3

REPORT INFORMATION
  Report Type: Spontaneous
  Country: US (occurrence: US)
  Receive Date: 20210915
  Receipt Date: 20210915
  Transmission Date: 20211014
  Serious: No
  Sender: FDA-Public Use
  Company Number: US-ENDO PHARMACEUTICALS INC-2021-001087

PATIENT
  Sex: Female

DRUGS (5)
  1. IBUPROFEN. [Suspect]
     Active Substance: IBUPROFEN
     Indication: SCIATICA
  2. LIDOCAINE. [Concomitant]
     Active Substance: LIDOCAINE
     Indication: HIP ARTHROPLASTY
  3. LIDOCAINE. [Concomitant]
     Active Substance: LIDOCAINE
     Indication: SCIATICA
  4. IBUPROFEN. [Suspect]
     Active Substance: IBUPROFEN
     Indication: HIP ARTHROPLASTY
     Dosage: 800 MG, UNKNOWN
     Route: 065
  5. XANAX [Concomitant]
     Active Substance: ALPRAZOLAM
     Indication: INSOMNIA

REACTIONS (3)
  - Drug ineffective [Unknown]
  - Ill-defined disorder [Unknown]
  - Contusion [Unknown]
